FAERS Safety Report 5619311-7 (Version None)
Quarter: 2008Q1

REPORT INFORMATION
  Report Type: 
  Country: None (occurrence: None)
  Receive Date: 20080114
  Receipt Date: 20070308
  Transmission Date: 20080703
  Serious: Yes (Other)
  Sender: FDA-Public Use
  Company Number: A03200701927

PATIENT
  Age: 66 Year
  Sex: Female
  Weight: 68.0396 kg

DRUGS (8)
  1. PLAVIX [Suspect]
     Indication: THROMBOSIS PROPHYLAXIS
     Dosage: 75 MG QD - ORAL
     Route: 048
     Dates: start: 20000101
  2. CLOPIDOGREL [Suspect]
     Indication: THROMBOSIS PROPHYLAXIS
     Dosage: 75 MG QD - ORAL
     Route: 048
     Dates: start: 20061023, end: 20061201
  3. AMLODIPINE BESILATE [Concomitant]
  4. BUPROPION HYDROCHLORIDE [Concomitant]
  5. ACETYLSALICYLIC ACID SRT [Concomitant]
  6. TIZANIDINE HYDROCHLORIDE [Concomitant]
  7. ALENDRONATE SODIUM [Concomitant]
  8. SIMVASTATIN [Concomitant]

REACTIONS (2)
  - ASTHENIA [None]
  - TRANSIENT ISCHAEMIC ATTACK [None]
